FAERS Safety Report 8845900 (Version 1)
Quarter: 2012Q4

REPORT INFORMATION
  Report Type: 
  Country: US (occurrence: US)
  Receive Date: 20121017
  Receipt Date: 20121017
  Transmission Date: 20130627
  Serious: Yes (Hospitalization, Other)
  Sender: FDA-Public Use
  Company Number: US-AMGEN-USASP2012065656

PATIENT
  Age: 71 Year
  Sex: Female

DRUGS (7)
  1. PROLIA [Suspect]
     Indication: OSTEOPOROSIS POSTMENOPAUSAL
     Dosage: UNK
     Dates: start: 201111
  2. DIURETIC                           /00022001/ [Concomitant]
  3. POTASSIUM [Concomitant]
  4. CALCIUM [Concomitant]
  5. OMEGA 3                            /01334101/ [Concomitant]
  6. ASPIRIN [Concomitant]
  7. VITAMIN D                          /00318501/ [Concomitant]

REACTIONS (10)
  - Femur fracture [Recovering/Resolving]
  - Foot fracture [Unknown]
  - Arthropathy [Unknown]
  - Renal impairment [Unknown]
  - Pain in extremity [Unknown]
  - Kidney infection [Unknown]
  - Pericardial effusion [Unknown]
  - Dehydration [Unknown]
  - Arthritis [Unknown]
  - Injury [Unknown]
